FAERS Safety Report 6840993-6 (Version None)
Quarter: 2010Q3

REPORT INFORMATION
  Report Type: 
  Country: None (occurrence: None)
  Receive Date: 20100714
  Receipt Date: 20070618
  Transmission Date: 20110219
  Serious: No
  Sender: FDA-Public Use
  Company Number: US-PFIZER INC-2007051292

PATIENT
  Sex: Female
  Weight: 107.27 kg

DRUGS (4)
  1. CHANTIX [Suspect]
     Indication: SMOKING CESSATION THERAPY
     Route: 048
     Dates: start: 20070601
  2. VERAPAMIL [Concomitant]
  3. MICARDIS [Concomitant]
     Indication: HYPERTENSION
  4. VYTORIN [Concomitant]
     Indication: BLOOD CHOLESTEROL INCREASED

REACTIONS (4)
  - ABNORMAL DREAMS [None]
  - HEADACHE [None]
  - NAUSEA [None]
  - VOMITING [None]
